FAERS Safety Report 4995777-0 (Version None)
Quarter: 2006Q2

REPORT INFORMATION
  Report Type: 
  Country: None (occurrence: None)
  Receive Date: 20060508
  Receipt Date: 20060502
  Transmission Date: 20061013
  Serious: Yes (Hospitalization)
  Sender: FDA-Public Use
  Company Number: DE-BOEHRINGER INGELHEIM PHARMACEUTICALS, INC.-2006-DE-02195DE

PATIENT
  Age: 66 Year
  Sex: Male
  Weight: 72 kg

DRUGS (4)
  1. MICARDIS HCT [Suspect]
     Indication: HYPERTENSION
     Dosage: 1X 80 MG TELMISARTAN, 12,5 MG HCT
     Route: 048
  2. CRANIO [Concomitant]
  3. ASPIRIN [Concomitant]
  4. IBUPROFEN [Concomitant]
     Dosage: INTERMITTENT

REACTIONS (4)
  - ERYTHEMA [None]
  - FACE OEDEMA [None]
  - RASH [None]
  - SKIN DISORDER [None]
